FAERS Safety Report 25887965 (Version 1)
Quarter: 2025Q4

REPORT INFORMATION
  Report Type: Spontaneous
  Country: US (occurrence: US)
  Receive Date: 20251007
  Receipt Date: 20251007
  Transmission Date: 20260117
  Serious: Yes (Hospitalization, Other)
  Sender: STRIDES
  Company Number: US-STRIDES PHARMA UK LTD.-2025SP009684

PATIENT
  Age: 63 Year
  Sex: Male

DRUGS (23)
  1. PREDNISOLONE [Suspect]
     Active Substance: PREDNISOLONE
     Indication: Dermatomyositis
     Dosage: 60 MILLIGRAMS
     Route: 065
     Dates: start: 2022
  2. PREDNISOLONE [Suspect]
     Active Substance: PREDNISOLONE
     Indication: Antinuclear antibody
     Dosage: 10 MILLIGRAMS, TAPERED FOR EVERY SIX DAYS
     Route: 065
     Dates: start: 2022
  3. PREDNISOLONE [Suspect]
     Active Substance: PREDNISOLONE
     Dosage: UNK, DOSAGE WAS TAPERED
     Route: 065
     Dates: start: 202210
  4. PREDNISOLONE [Suspect]
     Active Substance: PREDNISOLONE
     Dosage: 10 MILLIGRAM, QD REMAINED
     Route: 065
     Dates: start: 202210
  5. PREDNISOLONE [Suspect]
     Active Substance: PREDNISOLONE
     Dosage: 5 MILLIGRAM, QD
     Route: 065
     Dates: start: 202310
  6. GABAPENTIN [Suspect]
     Active Substance: GABAPENTIN
     Indication: Paraesthesia
     Dosage: UNK
     Route: 065
     Dates: start: 2022
  7. Immunoglobulin [Concomitant]
     Indication: Dermatomyositis
     Dosage: 2 GRAM PER KILOGRAM, QD, OVER TWO DAYS EVERY 30 DAYS
     Route: 042
     Dates: start: 2022
  8. Immunoglobulin [Concomitant]
     Indication: Antinuclear antibody
     Dosage: 1 MG/KG ON TWO CONSECUTIVE DAYS EVERY FOUR WEEKS
     Route: 042
     Dates: start: 2022
  9. Immunoglobulin [Concomitant]
     Dosage: 1 GRAM PER KILOGRAM EVERY FOUR WEEKS, TAPERED DOWN
     Route: 042
     Dates: start: 202310
  10. Immunoglobulin [Concomitant]
     Dosage: 2 GRAM PER KILOGRAM, QD, EVERY FOUR WEEKS
     Route: 042
     Dates: start: 202310
  11. Immunoglobulin [Concomitant]
     Dosage: UNK, TAPERED
     Route: 042
     Dates: start: 202412
  12. METHYLPREDNISOLONE [Concomitant]
     Active Substance: METHYLPREDNISOLONE
     Indication: Dermatomyositis
     Dosage: 500 MILLIGRAMS, QD, FOR THREE DAYS
     Route: 065
     Dates: start: 2022
  13. METHYLPREDNISOLONE [Concomitant]
     Active Substance: METHYLPREDNISOLONE
     Indication: Antinuclear antibody
  14. AZATHIOPRINE [Concomitant]
     Active Substance: AZATHIOPRINE
     Indication: Dermatomyositis
     Dosage: UNK, DAILY
     Route: 065
     Dates: start: 2022
  15. AZATHIOPRINE [Concomitant]
     Active Substance: AZATHIOPRINE
     Indication: Antinuclear antibody
     Dosage: 150 MILLIGRAM, QD
     Route: 065
     Dates: start: 202310
  16. RITUXIMAB [Concomitant]
     Active Substance: RITUXIMAB
     Indication: Dermatomyositis
     Dosage: 1000 MILLIGRAMS TWO DOSES
     Route: 065
     Dates: start: 2022
  17. RITUXIMAB [Concomitant]
     Active Substance: RITUXIMAB
     Indication: Antinuclear antibody
     Dosage: UNK, SINGLE DOSE
     Route: 065
     Dates: start: 202310
  18. SULFAMETHOXAZOLE [Concomitant]
     Active Substance: SULFAMETHOXAZOLE
     Indication: Pneumocystis jirovecii pneumonia
     Dosage: UNK
     Route: 065
     Dates: start: 2022
  19. SULFAMETHOXAZOLE [Concomitant]
     Active Substance: SULFAMETHOXAZOLE
     Indication: Prophylaxis
  20. TRIMETHOPRIM [Concomitant]
     Active Substance: TRIMETHOPRIM
     Indication: Pneumocystis jirovecii pneumonia
     Dosage: UNK
     Route: 065
     Dates: start: 2022
  21. TRIMETHOPRIM [Concomitant]
     Active Substance: TRIMETHOPRIM
     Indication: Prophylaxis
  22. TENOFOVIR ALAFENAMIDE [Concomitant]
     Active Substance: TENOFOVIR ALAFENAMIDE
     Indication: Hepatitis B reactivation
     Dosage: UNK
     Route: 065
     Dates: start: 2022
  23. DULOXETINE [Concomitant]
     Active Substance: DULOXETINE
     Indication: Paraesthesia
     Dosage: UNK
     Route: 065
     Dates: start: 2022

REACTIONS (2)
  - Asthenia [Unknown]
  - Off label use [Unknown]
